FAERS Safety Report 7866550-0 (Version None)
Quarter: 2011Q4

REPORT INFORMATION
  Report Type: 
  Country: None (occurrence: None)
  Receive Date: 20111028
  Receipt Date: 20110705
  Transmission Date: 20120403
  Serious: No
  Sender: FDA-Public Use
  Company Number: US-GLAXOSMITHKLINE-A0934956A

PATIENT
  Age: 70 Year
  Sex: Female

DRUGS (8)
  1. AMBIEN [Concomitant]
     Route: 048
  2. PREVACID [Concomitant]
     Route: 048
  3. NEBULIZER TREATMENT [Concomitant]
  4. LOTREL [Concomitant]
     Route: 048
  5. ADVAIR DISKUS 100/50 [Suspect]
     Indication: ASTHMA
     Dosage: 1PUFF TWICE PER DAY
     Route: 055
     Dates: start: 20110201
  6. PREDNISONE [Concomitant]
     Route: 048
  7. SINGULAIR [Concomitant]
  8. ALBUTEROL [Concomitant]

REACTIONS (2)
  - PRODUCT QUALITY ISSUE [None]
  - DRUG INEFFECTIVE [None]
